FAERS Safety Report 5581492-1 (Version None)
Quarter: 2008Q1

REPORT INFORMATION
  Report Type: 
  Country: None (occurrence: None)
  Receive Date: 20080103
  Receipt Date: 20080103
  Transmission Date: 20080703
  Serious: Yes (Other)
  Sender: FDA-Public Use
  Company Number: None

PATIENT
  Age: 33 Year
  Sex: Female
  Weight: 78.0187 kg

DRUGS (1)
  1. CHANTIX [Suspect]
     Indication: SMOKING CESSATION THERAPY
     Dosage: PRESCRIBED
     Dates: start: 20071001, end: 20071101

REACTIONS (5)
  - DEPRESSION [None]
  - FEELING ABNORMAL [None]
  - SOMNOLENCE [None]
  - SUICIDAL IDEATION [None]
  - TOBACCO WITHDRAWAL SYMPTOMS [None]
